FAERS Safety Report 21984905 (Version 1)
Quarter: 2023Q1

REPORT INFORMATION
  Report Type: Spontaneous
  Country: US (occurrence: None)
  Receive Date: 20230210
  Receipt Date: 20230210
  Transmission Date: 20230418
  Serious: Yes (Death)
  Sender: FDA-Public Use
  Company Number: None

PATIENT
  Sex: Female

DRUGS (16)
  1. LETAIRIS [Suspect]
     Active Substance: AMBRISENTAN
     Indication: Pulmonary arterial hypertension
     Dosage: FREQUENCY : DAILY;?
     Route: 048
  2. ADCIRCA [Concomitant]
     Active Substance: TADALAFIL
  3. VITAMIN B12 [Concomitant]
     Active Substance: CYANOCOBALAMIN
  4. PEPCID [Concomitant]
     Active Substance: FAMOTIDINE
  5. POTASSIUM [Concomitant]
     Active Substance: POTASSIUM
  6. NIFEDIPINE [Concomitant]
     Active Substance: NIFEDIPINE
  7. ZOLOFT [Concomitant]
     Active Substance: SERTRALINE HYDROCHLORIDE
  8. DUONEB [Concomitant]
     Active Substance: ALBUTEROL SULFATE\IPRATROPIUM BROMIDE
  9. TYLENOL [Concomitant]
     Active Substance: ACETAMINOPHEN
  10. ATORVASTATIN CALCIUM [Concomitant]
     Active Substance: ATORVASTATIN CALCIUM
  11. BUDESONIDE [Concomitant]
     Active Substance: BUDESONIDE
  12. SENOKOT [Concomitant]
     Active Substance: SENNOSIDES
  13. TORSEMIDE [Concomitant]
     Active Substance: TORSEMIDE
  14. ELIQUIS [Concomitant]
     Active Substance: APIXABAN
  15. METOLAZONE [Concomitant]
     Active Substance: METOLAZONE
  16. SPIRONOLACTONE [Concomitant]
     Active Substance: SPIRONOLACTONE

REACTIONS (1)
  - Death [None]
